FAERS Safety Report 8015225-6 (Version None)
Quarter: 2011Q4

REPORT INFORMATION
  Report Type: 
  Country: None (occurrence: None)
  Receive Date: 20111230
  Receipt Date: 20111229
  Transmission Date: 20120403
  Serious: No
  Sender: FDA-Public Use
  Company Number: US-BIOGENIDEC-2011BI048921

PATIENT
  Sex: Female

DRUGS (4)
  1. AVONEX [Concomitant]
     Indication: MULTIPLE SCLEROSIS
     Route: 030
     Dates: start: 20061011, end: 20070120
  2. TYSABRI [Suspect]
     Indication: MULTIPLE SCLEROSIS
     Route: 042
     Dates: start: 20081020
  3. TYSABRI [Suspect]
     Route: 042
  4. AVONEX [Concomitant]
     Route: 030

REACTIONS (2)
  - GENERAL PHYSICAL HEALTH DETERIORATION [None]
  - VISION BLURRED [None]
